FAERS Safety Report 19370308 (Version 1)
Quarter: 2021Q2

REPORT INFORMATION
  Report Type: Spontaneous
  Country: IN (occurrence: IN)
  Receive Date: 20210604
  Receipt Date: 20210604
  Transmission Date: 20210717
  Serious: Yes (Hospitalization, Other)
  Sender: FDA-Public Use
  Company Number: IN-SCIEGENPHARMA-2021SCILIT00457

PATIENT
  Age: 68 Year
  Sex: Female

DRUGS (8)
  1. CALCIUM GLUCONATE. [Interacting]
     Active Substance: CALCIUM GLUCONATE
     Route: 065
  2. INSULIN [Interacting]
     Active Substance: INSULIN NOS
     Route: 065
  3. SALBUTAMOL [Interacting]
     Active Substance: ALBUTEROL
     Route: 065
  4. OLMESARTAN MEDOXOMIL TABLETS 5 MG, 20 MG, 40 MG [Suspect]
     Active Substance: OLMESARTAN MEDOXOMIL
     Indication: HYPERTENSION
     Route: 065
  5. DUPHALAC [Interacting]
     Active Substance: LACTULOSE
     Indication: BLOOD POTASSIUM INCREASED
     Route: 065
  6. DYTOR PLUS [Suspect]
     Active Substance: SPIRONOLACTONE\TORSEMIDE
     Indication: OEDEMA PERIPHERAL
     Route: 065
  7. SODABICARB [Interacting]
     Active Substance: SODIUM BICARBONATE
     Route: 042
  8. DEXTROSE. [Interacting]
     Active Substance: DEXTROSE
     Route: 065

REACTIONS (4)
  - Metabolic acidosis [Recovered/Resolved]
  - Tremor [Recovered/Resolved]
  - Bradycardia [Recovered/Resolved]
  - Hyperkalaemia [Recovered/Resolved]
